FAERS Safety Report 7798109-8 (Version None)
Quarter: 2011Q4

REPORT INFORMATION
  Report Type: 
  Country: None (occurrence: None)
  Receive Date: 20111005
  Receipt Date: 20110930
  Transmission Date: 20120403
  Serious: Yes (Life-Threatening, Hospitalization)
  Sender: FDA-Public Use
  Company Number: JP-CELGENEUS-087-21880-11100041

PATIENT
  Sex: Female

DRUGS (6)
  1. REVLIMID [Suspect]
     Indication: MULTIPLE MYELOMA
     Dosage: 10 MILLIGRAM
     Route: 048
     Dates: start: 20100911, end: 20100916
  2. RABEPRAZOLE SODIUM [Concomitant]
     Indication: PROPHYLAXIS
     Route: 048
     Dates: start: 20100910, end: 20100927
  3. MAGNESIUM SULFATE [Concomitant]
     Route: 048
     Dates: start: 20100911, end: 20100927
  4. MS CONTIN [Concomitant]
     Dosage: 60 MILLIGRAM
     Route: 065
     Dates: start: 20100910, end: 20100927
  5. REVLIMID [Suspect]
     Indication: REFRACTORY CANCER
     Dosage: 15 MILLIGRAM
     Route: 048
     Dates: start: 20100919, end: 20100927
  6. PRIMPERAN TAB [Concomitant]
     Indication: PROPHYLAXIS
     Dosage: 15 MILLIGRAM
     Route: 065
     Dates: start: 20100911, end: 20100927

REACTIONS (2)
  - THROMBOCYTOPENIA [None]
  - NEUTROPENIA [None]
